FAERS Safety Report 4721809-0 (Version None)
Quarter: 2005Q3

REPORT INFORMATION
  Report Type: 
  Country: None (occurrence: None)
  Receive Date: 20050721
  Receipt Date: 20050422
  Transmission Date: 20060218
  Serious: No
  Sender: FDA-Public Use
  Company Number: US-BRISTOL-MYERS SQUIBB COMPANY-12943411

PATIENT
  Age: 85 Year
  Sex: Female

DRUGS (2)
  1. COUMADIN [Suspect]
     Indication: HEART RATE IRREGULAR
     Dosage: 2.5 MG DAILY EXCEPT WEDNESDAY AND SUNDAY WHEN THE DOSAGE IS 5 MG.
     Dates: start: 19960101
  2. COZAAR [Concomitant]

REACTIONS (2)
  - CYANOSIS [None]
  - SKIN DISCOLOURATION [None]
